FAERS Safety Report 7914938-1 (Version None)
Quarter: 2011Q4

REPORT INFORMATION
  Report Type: 
  Country: None (occurrence: None)
  Receive Date: 20111115
  Receipt Date: 20111107
  Transmission Date: 20120403
  Serious: Yes (Hospitalization)
  Sender: FDA-Public Use
  Company Number: JP-ELI_LILLY_AND_COMPANY-JP200705004959

PATIENT
  Sex: Male
  Weight: 21 kg

DRUGS (2)
  1. SOMATROPIN [Suspect]
     Indication: GROWTH HORMONE DEFICIENCY
     Dosage: 0.6 MG, 6/W
     Route: 058
     Dates: start: 20050507, end: 20070420
  2. SOMATROPIN [Suspect]
     Dosage: 0.8 MG, 6/W
     Route: 058
     Dates: start: 20070421

REACTIONS (1)
  - OSTEOCHONDROSIS [None]
